FAERS Safety Report 15516267 (Version 1)
Quarter: 2018Q4

REPORT INFORMATION
  Report Type: Report from Study
  Country: JP (occurrence: JP)
  Receive Date: 20181017
  Receipt Date: 20181017
  Transmission Date: 20190205
  Serious: Yes (Other)
  Sender: FDA-Public Use
  Company Number: JP-TEVA-2018-JP-963254

PATIENT
  Age: 12 Year
  Sex: Female

DRUGS (5)
  1. CYCLOPHOSPHAMIDE. [Suspect]
     Active Substance: CYCLOPHOSPHAMIDE
     Indication: EWING^S SARCOMA
     Dosage: PART OF THE VC-IE REGIMEN, WHICH WAS ADMINISTERED EVERY 2 WEEKS
     Route: 065
  2. IFOSFAMIDE. [Suspect]
     Active Substance: IFOSFAMIDE
     Indication: EWING^S SARCOMA
     Dosage: 1800MG/M2/DAY FOR FIVE DAYS; PART OF THE VC-IE REGIMEN, WHICH WAS ADMINISTERED EVERY 2 WEEKS
     Route: 065
  3. VINCRISTINE [Suspect]
     Active Substance: VINCRISTINE
     Indication: EWING^S SARCOMA
     Dosage: 1.5MG/M2 OF BODY SURFACE AREA; PART OF THE VC-IE REGIMEN, WHICH WAS ADMINISTERED EVERY 2 WEEKS
     Route: 065
  4. MESNA. [Concomitant]
     Active Substance: MESNA
     Indication: PROPHYLACTIC CHEMOTHERAPY
     Dosage: CHEMOPROTECTANT ALONG WITH CYCLOPHOSPHAMIDE AND IFOSFAMIDE
     Route: 065
  5. ETOPOSIDE. [Suspect]
     Active Substance: ETOPOSIDE
     Indication: EWING^S SARCOMA
     Dosage: 100MG/M2/DAY FOR FIVE DAYS; PART OF THE VC-IE REGIMEN, WHICH WAS ADMINISTERED EVERY 2 WEEKS
     Route: 065

REACTIONS (1)
  - Haematotoxicity [Recovered/Resolved]
